FAERS Safety Report 6102080-4 (Version None)
Quarter: 2009Q1

REPORT INFORMATION
  Report Type: 
  Country: None (occurrence: None)
  Receive Date: 20090304
  Receipt Date: 20090220
  Transmission Date: 20090719
  Serious: Yes (Hospitalization)
  Sender: FDA-Public Use
  Company Number: FR-PFIZER INC-2009175085

PATIENT

DRUGS (6)
  1. ATARAX [Suspect]
     Dosage: 0.5 DF, UNK
     Route: 048
     Dates: end: 20090107
  2. MEMANTINE HYDROCHLORIDE [Suspect]
     Dosage: 10 MG, 2X/DAY
     Route: 048
  3. REMINYL [Suspect]
     Dosage: 24 MG, 1X/DAY
     Route: 048
  4. PAROXETINE [Suspect]
     Dosage: 0.5 DF, 1X/DAY
     Route: 048
  5. INSULIN GLARGINE [Concomitant]
  6. INSULIN ASPART [Concomitant]

REACTIONS (6)
  - APHASIA [None]
  - DEMENTIA [None]
  - FALL [None]
  - HAEMATOMA [None]
  - IATROGENIC INJURY [None]
  - JOINT DISLOCATION [None]
